FAERS Safety Report 8910956 (Version 1)
Quarter: 2012Q4

REPORT INFORMATION
  Report Type: 
  Country: IT (occurrence: IT)
  Receive Date: 20121116
  Receipt Date: 20121116
  Transmission Date: 20130627
  Serious: Yes (Other)
  Sender: FDA-Public Use
  Company Number: IT-ELI_LILLY_AND_COMPANY-IT201211002056

PATIENT
  Age: 73 Year
  Sex: Female

DRUGS (2)
  1. FORSTEO [Suspect]
     Dosage: UNK, unknown
     Route: 065
     Dates: start: 201206
  2. FORSTEO [Suspect]
     Dosage: UNK, unknown
     Route: 065

REACTIONS (2)
  - Gallbladder operation [Unknown]
  - Intentional drug misuse [Recovered/Resolved]
